FAERS Safety Report 23773046 (Version 1)
Quarter: 2024Q2

REPORT INFORMATION
  Report Type: Spontaneous
  Country: JP (occurrence: JP)
  Receive Date: 20240423
  Receipt Date: 20240423
  Transmission Date: 20240716
  Serious: Yes (Death, Life-Threatening, Hospitalization, Other)
  Sender: FDA-Public Use
  Company Number: JP-VANTIVE-2024BAX015686

PATIENT
  Age: 58 Year
  Sex: Female

DRUGS (2)
  1. REGUNEAL LCA [Suspect]
     Active Substance: CALCIUM CHLORIDE\DEXTROSE MONOHYDRATE\HYDROCHLORIC ACID\MAGNESIUM CHLORIDE\SODIUM BICARBONATE\SODIUM
     Indication: Dialysis
     Dosage: UNK
     Route: 033
     Dates: start: 20221128
  2. REGUNEAL LCA [Suspect]
     Active Substance: CALCIUM CHLORIDE\DEXTROSE MONOHYDRATE\HYDROCHLORIC ACID\MAGNESIUM CHLORIDE\SODIUM BICARBONATE\SODIUM
     Dosage: 6L
     Route: 033
     Dates: start: 20240221, end: 20240318

REACTIONS (5)
  - Pulmonary oedema [Fatal]
  - Hypoxia [Fatal]
  - Dyspnoea [Fatal]
  - Cardiac failure congestive [Fatal]
  - Thrombosis [Unknown]

NARRATIVE: CASE EVENT DATE: 20240327
